FAERS Safety Report 21480890 (Version 2)
Quarter: 2022Q4

REPORT INFORMATION
  Report Type: Spontaneous
  Country: US (occurrence: US)
  Receive Date: 20221019
  Receipt Date: 20221019
  Transmission Date: 20230113
  Serious: No
  Sender: FDA-Public Use
  Company Number: US-GALDERMA-US2022010488

PATIENT

DRUGS (5)
  1. AKLIEF [Suspect]
     Active Substance: TRIFAROTENE
     Indication: Acne
     Dosage: 1 DOSAGE FORM, EVERY 3RD OR 4TH DAY
     Route: 061
     Dates: start: 20220527, end: 2022
  2. AKLIEF [Suspect]
     Active Substance: TRIFAROTENE
     Dosage: 1 DOSAGE FORM, QWK
     Route: 061
     Dates: start: 20220527, end: 2022
  3. AKLIEF [Suspect]
     Active Substance: TRIFAROTENE
     Dosage: 1 DOSAGE FORM, QD, FOR ALMOST 2 MONTHS
     Route: 061
     Dates: start: 2022, end: 2022
  4. AKLIEF [Suspect]
     Active Substance: TRIFAROTENE
     Dosage: 1 DOSAGE FORM, QOD
     Route: 061
     Dates: start: 2022
  5. DOXYCYCLINE [Concomitant]
     Active Substance: DOXYCYCLINE
     Indication: Product used for unknown indication
     Dosage: UNKNOWN
     Route: 065

REACTIONS (4)
  - Acne [Not Recovered/Not Resolved]
  - Drug ineffective [Not Recovered/Not Resolved]
  - Off label use [Recovered/Resolved]
  - Intentional underdose [Recovered/Resolved]

NARRATIVE: CASE EVENT DATE: 20220101
